FAERS Safety Report 6267336-3 (Version None)
Quarter: 2009Q3

REPORT INFORMATION
  Report Type: 
  Country: None (occurrence: None)
  Receive Date: 20090714
  Receipt Date: 20090706
  Transmission Date: 20100115
  Serious: Yes (Life-Threatening, Hospitalization, Disabling, Other)
  Sender: FDA-Public Use
  Company Number: A0793571A

PATIENT
  Age: 25 Year
  Sex: Male

DRUGS (3)
  1. LAMICTAL [Suspect]
     Route: 048
  2. LEXAPRO [Concomitant]
  3. AMBIEN [Concomitant]

REACTIONS (5)
  - BLINDNESS [None]
  - EYE DISORDER [None]
  - INFECTION [None]
  - RASH [None]
  - STEVENS-JOHNSON SYNDROME [None]
